FAERS Safety Report 6958581-X (Version None)
Quarter: 2010Q3

REPORT INFORMATION
  Report Type: 
  Country: None (occurrence: None)
  Receive Date: 20100831
  Receipt Date: 20100823
  Transmission Date: 20110219
  Serious: No
  Sender: FDA-Public Use
  Company Number: US-US-EMD SERONO, INC.-7015540

PATIENT
  Sex: Female
  Weight: 81 kg

DRUGS (4)
  1. REBIF [Suspect]
     Indication: MULTIPLE SCLEROSIS
     Route: 058
     Dates: start: 20100713
  2. LISINOPRIL [Concomitant]
     Indication: FAMILIAL RISK FACTOR
     Dates: start: 20050101
  3. NIASPAN [Concomitant]
     Indication: FAMILIAL RISK FACTOR
     Dates: start: 20050101
  4. ASPIRIN [Concomitant]
     Indication: FAMILIAL RISK FACTOR

REACTIONS (4)
  - ABDOMINAL DISTENSION [None]
  - INJECTION SITE ERYTHEMA [None]
  - INJECTION SITE PAIN [None]
  - POSTMENOPAUSAL HAEMORRHAGE [None]
